FAERS Safety Report 19024499 (Version 5)
Quarter: 2021Q3

REPORT INFORMATION
  Report Type: Spontaneous
  Country: CA (occurrence: CA)
  Receive Date: 20210317
  Receipt Date: 20210903
  Transmission Date: 20211014
  Serious: Yes (Other)
  Sender: FDA-Public Use
  Company Number: CA-CELLTRION INC.-2021CA002053

PATIENT

DRUGS (10)
  1. INFLECTRA [Suspect]
     Active Substance: INFLIXIMAB-DYYB
     Indication: CROHN^S DISEASE
     Dosage: 5 MG/KG, INDUCTION AT Q (EVERY) 0, 2, 6 WEEK THEN EVERY 8 WEEKS
     Route: 042
     Dates: start: 20210125
  2. INFLECTRA [Suspect]
     Active Substance: INFLIXIMAB-DYYB
     Dosage: 5 MG/KG EVERY 8 WEEK
     Route: 042
     Dates: start: 20210503
  3. INFLECTRA [Suspect]
     Active Substance: INFLIXIMAB-DYYB
     Dosage: 290 MG, AT 2 WEEK
     Route: 042
     Dates: start: 20210208, end: 20210208
  4. INFLECTRA [Suspect]
     Active Substance: INFLIXIMAB-DYYB
     Dosage: 5 MG/KG, INDUCTION AT Q (EVERY) 0, 2, 6 WEEK THEN EVERY 8 WEEKS
     Route: 042
     Dates: start: 20210208
  5. INFLECTRA [Suspect]
     Active Substance: INFLIXIMAB-DYYB
     Dosage: 5 MG/KG EVERY 8 WEEK
     Route: 042
     Dates: start: 20210628
  6. INFLECTRA [Suspect]
     Active Substance: INFLIXIMAB-DYYB
     Dosage: 5 MG/KG EVERY 8 WEEK
     Route: 042
     Dates: start: 20210823
  7. INFLECTRA [Suspect]
     Active Substance: INFLIXIMAB-DYYB
     Dosage: 290 MG, AT WEEK 6 DOSE
     Route: 042
     Dates: start: 20210308, end: 20210308
  8. INFLECTRA [Suspect]
     Active Substance: INFLIXIMAB-DYYB
     Dosage: 280 MG, AT 0 WEEK DOSE
     Route: 042
     Dates: start: 20210125, end: 20210125
  9. INFLECTRA [Suspect]
     Active Substance: INFLIXIMAB-DYYB
     Dosage: 290 MG, AT 2 WEEK
     Route: 042
     Dates: start: 20210208
  10. INFLECTRA [Suspect]
     Active Substance: INFLIXIMAB-DYYB
     Dosage: 290 MG, AT WEEK 6 DOSE
     Route: 042
     Dates: start: 20210308

REACTIONS (9)
  - Haematochezia [Unknown]
  - Dizziness [Recovered/Resolved]
  - Anal abscess [Not Recovered/Not Resolved]
  - Dysmenorrhoea [Unknown]
  - Abdominal pain [Not Recovered/Not Resolved]
  - Nausea [Unknown]
  - Erythema [Unknown]
  - Blood pressure diastolic decreased [Unknown]
  - Diarrhoea [Recovered/Resolved]

NARRATIVE: CASE EVENT DATE: 20210208
